FAERS Safety Report 4950727-8 (Version None)
Quarter: 2006Q1

REPORT INFORMATION
  Report Type: 
  Country: None (occurrence: None)
  Receive Date: 20060321
  Receipt Date: 20060321
  Transmission Date: 20060701
  Serious: Yes (Death)
  Sender: FDA-Public Use
  Company Number: None

PATIENT
  Age: 62 Year
  Sex: Female

DRUGS (3)
  1. GEMZAR [Suspect]
     Indication: PANCREATIC CARCINOMA METASTATIC
     Dosage: 1068 MG   WEEKLY    IV DRIP
     Route: 041
     Dates: start: 20051005, end: 20060208
  2. TAXOTERE [Suspect]
     Indication: PANCREATIC CARCINOMA METASTATIC
     Dosage: 43 MG     WEEKLY       IV DRIP
     Route: 041
     Dates: start: 20051005, end: 20060208
  3. XELODA [Suspect]
     Dosage: 1500MG/M2    DAILY    PO
     Route: 048
     Dates: start: 20051002, end: 20060212

REACTIONS (4)
  - DEEP VEIN THROMBOSIS [None]
  - PANCREATIC CARCINOMA METASTATIC [None]
  - SMALL INTESTINAL OBSTRUCTION [None]
  - TACHYCARDIA [None]
